FAERS Safety Report 4364065-8 (Version None)
Quarter: 2004Q2

REPORT INFORMATION
  Report Type: 
  Country: None (occurrence: None)
  Receive Date: 20040521
  Receipt Date: 20040521
  Transmission Date: 20050107
  Serious: Yes (Hospitalization)
  Sender: FDA-Public Use
  Company Number: None

PATIENT
  Sex: Male
  Weight: 58.0604 kg

DRUGS (5)
  1. IBUPROFEN [Suspect]
     Indication: ARTHRALGIA
     Dosage: 800 MG ONCE ORAL
     Route: 048
     Dates: start: 20040308, end: 20040308
  2. CALCIUM SUPPLEMENT [Concomitant]
  3. LIDOCAINE HCL VISCOUS [Concomitant]
  4. VITAMIN B-12 [Concomitant]
  5. SIMVASTATIN [Concomitant]

REACTIONS (3)
  - PRURITUS GENERALISED [None]
  - RASH GENERALISED [None]
  - URTICARIA GENERALISED [None]
